FAERS Safety Report 6177558-8 (Version None)
Quarter: 2009Q2

REPORT INFORMATION
  Report Type: 
  Country: None (occurrence: None)
  Receive Date: 20090504
  Receipt Date: 20090428
  Transmission Date: 20091009
  Serious: Yes (Other)
  Sender: FDA-Public Use
  Company Number: US-ELI_LILLY_AND_COMPANY-US200903005702

PATIENT
  Sex: Female

DRUGS (14)
  1. HUMALOG [Suspect]
     Dosage: UNK, AS NEEDED
     Dates: start: 20090222
  2. NOVOLOG [Concomitant]
  3. BUPROPION HCL [Concomitant]
  4. TRAZODONE HCL [Concomitant]
  5. ATENOLOL [Concomitant]
  6. HYDROCHLOROTHIAZIDE [Concomitant]
  7. NORVASC [Concomitant]
  8. CAPTOPRIL [Concomitant]
  9. ZOCOR [Concomitant]
  10. DETROL [Concomitant]
  11. ACTONEL [Concomitant]
  12. CENTRUM /00554501/ [Concomitant]
  13. ASPIRIN [Concomitant]
  14. VICODIN [Concomitant]

REACTIONS (3)
  - EYE HAEMORRHAGE [None]
  - HYPERTENSION [None]
  - MACULAR OEDEMA [None]
